FAERS Safety Report 11087347 (Version 2)
Quarter: 2015Q2

REPORT INFORMATION
  Report Type: Spontaneous
  Country: JP (occurrence: JP)
  Receive Date: 20150504
  Receipt Date: 20150526
  Transmission Date: 20150821
  Serious: Yes (Death, Other)
  Sender: FDA-Public Use
  Company Number: JP-ASTELLAS-2015US014975

PATIENT
  Age: 75 Year
  Sex: Male

DRUGS (20)
  1. GASTER [Concomitant]
     Active Substance: FAMOTIDINE
     Indication: MALIGNANT NEOPLASM OF UNKNOWN PRIMARY SITE
     Route: 041
     Dates: start: 20121017, end: 20121017
  2. CRAVIT [Concomitant]
     Active Substance: LEVOFLOXACIN
     Indication: INFECTION
     Route: 048
     Dates: start: 20120921, end: 20121011
  3. NAUZELIN [Concomitant]
     Active Substance: DOMPERIDONE
     Indication: PRODUCT USED FOR UNKNOWN INDICATION
     Route: 048
     Dates: start: 20121018, end: 20121020
  4. TAKEPRON [Concomitant]
     Active Substance: LANSOPRAZOLE
     Indication: PROPHYLAXIS
     Route: 048
     Dates: start: 20120919, end: 20121001
  5. BEVACIZUMAB [Suspect]
     Active Substance: BEVACIZUMAB
     Indication: NEOPLASM MALIGNANT
     Route: 065
     Dates: start: 20121016
  6. KYTRIL [Concomitant]
     Active Substance: GRANISETRON HYDROCHLORIDE
     Indication: MALIGNANT NEOPLASM OF UNKNOWN PRIMARY SITE
     Route: 041
  7. TRAMAL [Concomitant]
     Active Substance: TRAMADOL
     Indication: PRODUCT USED FOR UNKNOWN INDICATION
     Dosage: UNK UNK, UNKNOWN FREQ.
     Route: 048
     Dates: start: 20121005, end: 20121030
  8. NOVAMIN                            /00013301/ [Concomitant]
     Active Substance: PROCHLORPERAZINE MALEATE
     Indication: NAUSEA
     Route: 048
     Dates: start: 20121005, end: 20121011
  9. DECADRON [Concomitant]
     Active Substance: DEXAMETHASONE
     Indication: PRODUCT USED FOR UNKNOWN INDICATION
     Dosage: 0.5 MG, TWICE DAILY
     Route: 048
     Dates: start: 20121018, end: 20121020
  10. PACLITAXEL. [Suspect]
     Active Substance: PACLITAXEL
     Indication: NEOPLASM MALIGNANT
     Route: 041
     Dates: start: 20121016, end: 20121030
  11. DEXART [Concomitant]
     Active Substance: DEXAMETHASONE SODIUM PHOSPHATE
     Indication: MALIGNANT NEOPLASM OF UNKNOWN PRIMARY SITE
     Dosage: 6.6 MG, ONCE DAILY
     Route: 041
     Dates: start: 20121017, end: 20121017
  12. MOBIC [Concomitant]
     Active Substance: MELOXICAM
     Indication: ABDOMINAL PAIN
     Route: 048
     Dates: start: 20120921, end: 20121030
  13. ERLOTINIB [Suspect]
     Active Substance: ERLOTINIB
     Indication: NEOPLASM MALIGNANT
     Route: 065
     Dates: start: 20121017, end: 20121030
  14. LOXONIN [Concomitant]
     Active Substance: LOXOPROFEN SODIUM
     Indication: ABDOMINAL PAIN
     Route: 048
     Dates: start: 20120921, end: 20121030
  15. VENA                               /00000402/ [Concomitant]
     Indication: PROPHYLAXIS
     Dosage: UNK UNK, UNKNOWN FREQ.
     Route: 048
     Dates: start: 20121017, end: 20121017
  16. CARBOPLATIN. [Suspect]
     Active Substance: CARBOPLATIN
     Indication: NEOPLASM MALIGNANT
     Dosage: UNK, UNKNOWN FREQ.
     Route: 041
     Dates: start: 20121016, end: 20121030
  17. RINDERON                           /00008501/ [Concomitant]
     Active Substance: BETAMETHASONE
     Indication: TUMOUR ASSOCIATED FEVER
     Dosage: 0.5 MG, ONCE DAILY
     Route: 048
     Dates: start: 20120921, end: 20121030
  18. PARIET [Concomitant]
     Active Substance: RABEPRAZOLE SODIUM
     Indication: PROPHYLAXIS
     Route: 048
     Dates: start: 20120921, end: 20121030
  19. BAKTAR [Concomitant]
     Active Substance: SULFAMETHOXAZOLE\TRIMETHOPRIM
     Indication: PRODUCT USED FOR UNKNOWN INDICATION
     Dosage: UNK UNK, ONCE DAILY
     Route: 048
     Dates: start: 20120921, end: 20121030
  20. GASMOTIN [Concomitant]
     Active Substance: MOSAPRIDE CITRATE
     Indication: ABDOMINAL PAIN
     Route: 048
     Dates: start: 20120921, end: 20121030

REACTIONS (10)
  - Melaena [Unknown]
  - Constipation [Unknown]
  - White blood cell count decreased [Recovered/Resolved]
  - Aspartate aminotransferase increased [Recovered/Resolved]
  - Intestinal perforation [Fatal]
  - Anaemia [Recovered/Resolved]
  - Tumour associated fever [Unknown]
  - Platelet count decreased [Unknown]
  - Peritonitis [Unknown]
  - Pain [Unknown]

NARRATIVE: CASE EVENT DATE: 20121023
